FAERS Safety Report 8262308-1 (Version None)
Quarter: 2012Q2

REPORT INFORMATION
  Report Type: 
  Country: None (occurrence: None)
  Receive Date: 20120405
  Receipt Date: 20120329
  Transmission Date: 20120825
  Serious: Yes (Hospitalization, Other)
  Sender: FDA-Public Use
  Company Number: JP-SANOFI-AVENTIS-2012SA002643

PATIENT
  Age: 67 Year
  Sex: Male
  Weight: 49 kg

DRUGS (29)
  1. OXALIPLATIN [Suspect]
     Route: 041
     Dates: start: 20110511
  2. LEUCOVORIN CALCIUM [Concomitant]
     Route: 041
     Dates: start: 20111012, end: 20111102
  3. ALOXI [Concomitant]
     Indication: PREMEDICATION
     Route: 041
     Dates: start: 20110713, end: 20111102
  4. CALCIUM CARBONATE [Concomitant]
     Indication: RENAL IMPAIRMENT
     Route: 048
  5. OXALIPLATIN [Suspect]
     Route: 041
     Dates: start: 20110803
  6. FLUOROURACIL [Suspect]
     Indication: COLON CANCER
     Dosage: DOSE: 400 MG/M2 BOLUS
     Route: 040
     Dates: start: 20110323, end: 20110829
  7. OXALIPLATIN [Suspect]
     Indication: COLON CANCER
     Dosage: DAILY DOSE: 90.6 MG/BODY
     Route: 041
     Dates: start: 20110323
  8. OXALIPLATIN [Suspect]
     Dosage: CYCLE: 2-3
     Route: 041
     Dates: start: 20110413
  9. OXALIPLATIN [Suspect]
     Dosage: CYCLES: 4-6
     Route: 041
     Dates: start: 20110601
  10. OXALIPLATIN [Suspect]
     Dosage: CYCLES: 8-9
     Route: 041
     Dates: start: 20110829
  11. BEVACIZUMAB [Suspect]
     Indication: COLON CANCER
     Route: 041
     Dates: start: 20110413, end: 20110829
  12. GRANISETRON [Concomitant]
     Indication: PREMEDICATION
     Route: 041
     Dates: start: 20110323, end: 20110622
  13. OLMESARTAN MEDOXOMIL [Concomitant]
     Indication: HYPERTENSION
     Route: 048
  14. BEVACIZUMAB [Suspect]
     Route: 041
     Dates: start: 20111012, end: 20111102
  15. LEUCOVORIN CALCIUM [Concomitant]
     Indication: COLON CANCER
     Route: 041
     Dates: start: 20110323, end: 20110829
  16. PREDNISOLONE [Concomitant]
     Indication: HEPATIC FUNCTION ABNORMAL
     Dosage: 50-30-20-30-20-10-5-10-5MG
     Route: 041
     Dates: start: 20111115, end: 20120101
  17. LANSOPRAZOLE [Concomitant]
     Indication: GASTRIC ULCER
     Route: 048
  18. OXALIPLATIN [Suspect]
     Route: 041
     Dates: start: 20111102
  19. FLUOROURACIL [Suspect]
     Route: 041
     Dates: start: 20111012, end: 20111102
  20. DECADRON [Concomitant]
     Indication: PREMEDICATION
     Route: 041
     Dates: start: 20110713, end: 20111102
  21. RED BLOOD CELLS, CONCENTRATED [Concomitant]
     Route: 041
     Dates: start: 20110912, end: 20110912
  22. ROCALTROL [Concomitant]
     Indication: HYPERTENSION
     Route: 048
  23. DISOPYRAMIDE PHOSPHATE [Concomitant]
     Indication: ATRIAL FIBRILLATION
     Route: 048
  24. RENAGEL [Concomitant]
     Indication: RENAL IMPAIRMENT
     Route: 048
  25. CARVEDILOL [Concomitant]
     Indication: HYPERTENSION
     Route: 048
  26. ALLOPURINOL [Concomitant]
     Indication: HYPERURICAEMIA
     Route: 048
  27. FLUOROURACIL [Suspect]
     Route: 040
     Dates: start: 20111012, end: 20111102
  28. FLUOROURACIL [Suspect]
     Dosage: 1-8 CYCLES
     Route: 041
     Dates: start: 20110323, end: 20110829
  29. LASIX [Concomitant]
     Indication: RENAL IMPAIRMENT
     Route: 048

REACTIONS (5)
  - HAEMOGLOBIN DECREASED [None]
  - HEPATIC FUNCTION ABNORMAL [None]
  - CHOLELITHIASIS [None]
  - WHITE BLOOD CELL COUNT DECREASED [None]
  - NEUTROPHIL COUNT DECREASED [None]
